FAERS Safety Report 4438945-9 (Version None)
Quarter: 2004Q3

REPORT INFORMATION
  Report Type: 
  Country: None (occurrence: None)
  Receive Date: 20040830
  Receipt Date: 20040823
  Transmission Date: 20050211
  Serious: Yes (Other)
  Sender: FDA-Public Use
  Company Number: 200413844BCC

PATIENT
  Age: 69 Year
  Sex: Female
  Weight: 65.318 kg

DRUGS (4)
  1. MILK OF MAGNESIA TAB [Suspect]
     Indication: CONSTIPATION
     Dosage: 45 ML, PRN, ORAL
     Route: 048
  2. DIURETIC [Concomitant]
  3. NORVASC [Concomitant]
  4. THYROID MEDICATION (NOS) [Concomitant]

REACTIONS (4)
  - BLOOD POTASSIUM DECREASED [None]
  - CIRCULATORY COLLAPSE [None]
  - DIZZINESS [None]
  - RETCHING [None]
